FAERS Safety Report 6333226-0 (Version None)
Quarter: 2009Q3

REPORT INFORMATION
  Report Type: 
  Country: None (occurrence: None)
  Receive Date: 20090828
  Receipt Date: 20090818
  Transmission Date: 20100115
  Serious: Yes (Other)
  Sender: FDA-Public Use
  Company Number: US-PFIZER INC-2008101261

PATIENT
  Sex: Male
  Weight: 81.633 kg

DRUGS (8)
  1. REVATIO [Suspect]
     Indication: PULMONARY HYPERTENSION
     Dosage: 20 MG, 3X/DAY
     Dates: start: 20080220, end: 20090801
  2. REVATIO [Suspect]
     Indication: CHRONIC OBSTRUCTIVE PULMONARY DISEASE
     Dosage: 25 MG, UNK
     Dates: end: 20090801
  3. TENORMIN [Concomitant]
     Dosage: 5 MG, 1X/DAY
  4. LISINOPRIL [Concomitant]
     Dosage: 5 MG, 1X/DAY
  5. ADVAIR HFA [Concomitant]
     Dosage: UNK
  6. SPIRIVA [Concomitant]
     Dosage: UNK
  7. TAMSULOSIN HYDROCHLORIDE [Concomitant]
     Dosage: .4 MG, 1X/DAY
  8. OXYGEN [Concomitant]
     Dosage: 4 L, UNK

REACTIONS (3)
  - DRUG INEFFECTIVE [None]
  - DYSPNOEA [None]
  - OXYGEN SATURATION DECREASED [None]
